FAERS Safety Report 8876628 (Version 2)
Quarter: 2013Q2

REPORT INFORMATION
  Report Type: Spontaneous
  Country: AU (occurrence: AU)
  Receive Date: 20121023
  Receipt Date: 20130419
  Transmission Date: 20140414
  Serious: Yes (Other)
  Sender: FDA-Public Use
  Company Number: PHHY2012AU093510

PATIENT
  Age: 49 Year
  Sex: Female

DRUGS (4)
  1. CARBOPLATIN [Suspect]
     Indication: BREAST CANCER
  2. DOCETAXEL [Concomitant]
     Indication: BREAST CANCER
     Dosage: 75 MG/M2
  3. TRASTUZUMAB [Concomitant]
     Indication: BREAST CANCER
     Dosage: 8 MG/KG, LOADING DOSE
  4. TRASTUZUMAB [Concomitant]
     Dosage: 6 MG/KG, TIW

REACTIONS (4)
  - Inappropriate antidiuretic hormone secretion [Recovered/Resolved]
  - Hyponatraemia [Recovered/Resolved]
  - Lethargy [Recovered/Resolved]
  - Hypokalaemia [Unknown]
